FAERS Safety Report 5704162-5 (Version None)
Quarter: 2008Q2

REPORT INFORMATION
  Report Type: 
  Country: None (occurrence: None)
  Receive Date: 20080414
  Receipt Date: 20080414
  Transmission Date: 20081010
  Serious: Yes (Hospitalization)
  Sender: FDA-Public Use
  Company Number: None

PATIENT
  Age: 36 Year
  Sex: Female
  Weight: 103 kg

DRUGS (22)
  1. HEPARIN [Suspect]
     Indication: THROMBOSIS PROPHYLAXIS
     Dosage: 5,000 UNITS EVERY 8 HOURS SC
     Route: 058
     Dates: start: 20080225, end: 20080306
  2. ACETAMINOPHEN [Concomitant]
  3. ASPIRIN [Concomitant]
  4. DIGOXIN [Concomitant]
  5. DOBUTAMINE HCL [Concomitant]
  6. DOPAMINE HCL [Concomitant]
  7. CARVEDILOL [Concomitant]
  8. ENALAPRIL MALEATE [Concomitant]
  9. FUROSEMIDE [Concomitant]
  10. MAGNESIUM OXIDE [Concomitant]
  11. MAGNESIUM SULFATE [Concomitant]
  12. METHYLPREDNISOLONE [Concomitant]
  13. NITROGLYCERIN [Concomitant]
  14. PANTOPRAZOLE SODIUM [Concomitant]
  15. POTASSIUM CHLORIDE [Concomitant]
  16. SALINE FLUSHES [Concomitant]
  17. VERUCRONIUM [Concomitant]
  18. HEPARIN [Suspect]
  19. HEPARIN [Suspect]
  20. HEPARIN [Suspect]
  21. HEPARIN [Suspect]
  22. HEPARIN [Suspect]

REACTIONS (2)
  - DRUG HYPERSENSITIVITY [None]
  - HEPARIN-INDUCED THROMBOCYTOPENIA [None]
